FAERS Safety Report 8403741-4 (Version None)
Quarter: 2012Q2

REPORT INFORMATION
  Report Type: 
  Country: None (occurrence: None)
  Receive Date: 20120601
  Receipt Date: 20110818
  Transmission Date: 20120825
  Serious: No
  Sender: FDA-Public Use
  Company Number: US-NOVEN-11US002999

PATIENT
  Sex: Male

DRUGS (5)
  1. DAYTRANA [Suspect]
     Dosage: 10 MG, QD
     Route: 062
     Dates: start: 20110701
  2. CLONIDINE [Concomitant]
     Indication: MOOD SWINGS
     Route: 048
  3. RISPERDAL [Concomitant]
     Indication: MOOD SWINGS
     Route: 048
  4. UNSPECIFIED MEDICATION [Concomitant]
     Indication: MOOD SWINGS
     Route: 048
  5. DAYTRANA [Suspect]
     Indication: MOOD SWINGS
     Dosage: 10 MG, QD
     Route: 062
     Dates: start: 20070101, end: 20110701

REACTIONS (5)
  - PRODUCT QUALITY ISSUE [None]
  - DISTURBANCE IN SOCIAL BEHAVIOUR [None]
  - INCORRECT DRUG ADMINISTRATION DURATION [None]
  - WRONG TECHNIQUE IN DRUG USAGE PROCESS [None]
  - OFF LABEL USE [None]
